FAERS Safety Report 18618243 (Version 1)
Quarter: 2020Q4

REPORT INFORMATION
  Report Type: Spontaneous
  Country: SV (occurrence: SV)
  Receive Date: 20201215
  Receipt Date: 20201215
  Transmission Date: 20210114
  Serious: Yes (Other)
  Sender: FDA-Public Use
  Company Number: NVSC2020SV328149

PATIENT
  Sex: Male

DRUGS (1)
  1. GLIVEC [Suspect]
     Active Substance: IMATINIB MESYLATE
     Indication: CHRONIC MYELOID LEUKAEMIA
     Dosage: 400 MG, (1 OF 400 MG)
     Route: 065

REACTIONS (3)
  - Therapy non-responder [Unknown]
  - Neutrophil count abnormal [Unknown]
  - Haematotoxicity [Unknown]
